FAERS Safety Report 5039305-2 (Version None)
Quarter: 2006Q2

REPORT INFORMATION
  Report Type: 
  Country: None (occurrence: None)
  Receive Date: 20060629
  Receipt Date: 20060622
  Transmission Date: 20061013
  Serious: Yes (Hospitalization)
  Sender: FDA-Public Use
  Company Number: GB-JNJFOC-20060605133

PATIENT
  Sex: Female

DRUGS (2)
  1. RISPERDAL CONSTA [Suspect]
     Route: 030
  2. RISPERDAL CONSTA [Suspect]
     Indication: PSYCHOTIC DISORDER
     Route: 030

REACTIONS (2)
  - PSYCHOTIC DISORDER [None]
  - TREATMENT NONCOMPLIANCE [None]
